FAERS Safety Report 15507466 (Version 4)
Quarter: 2019Q3

REPORT INFORMATION
  Report Type: Report from Study
  Country: JP (occurrence: JP)
  Receive Date: 20181016
  Receipt Date: 20190829
  Transmission Date: 20191004
  Serious: Yes (Hospitalization, Other)
  Sender: FDA-Public Use
  Company Number: JP-PFIZER INC-2018409318

PATIENT
  Age: 82 Year
  Sex: Male
  Weight: 50.4 kg

DRUGS (20)
  1. NEXIUM [Concomitant]
     Active Substance: ESOMEPRAZOLE MAGNESIUM
     Indication: GASTRIC ULCER
     Dosage: UNK
     Route: 048
  2. URIADEC [Concomitant]
     Active Substance: TOPIROXOSTAT
     Indication: HYPERURICAEMIA
     Dosage: UNK
     Route: 048
     Dates: start: 20170727
  3. PLETAAL [Concomitant]
     Active Substance: CILOSTAZOL
     Indication: MYOCARDIAL ISCHAEMIA
     Dosage: UNK
     Route: 048
     Dates: start: 20180716, end: 20180721
  4. ENALAPRIL MALEATE. [Suspect]
     Active Substance: ENALAPRIL MALEATE
     Indication: CARDIAC FAILURE
     Dosage: UNK
     Route: 048
     Dates: start: 20180320, end: 20180429
  5. LUPRAC [Suspect]
     Active Substance: TORSEMIDE
     Indication: OEDEMA DUE TO CARDIAC DISEASE
     Dosage: UNK
     Route: 048
     Dates: start: 20180430
  6. KALGUT [Concomitant]
     Active Substance: DENOPAMINE
     Indication: CARDIAC FAILURE
     Dosage: UNK
     Route: 048
     Dates: start: 20180327
  7. TOPILORIC [Concomitant]
     Active Substance: TOPIROXOSTAT
     Indication: HYPERURICAEMIA
     Dosage: UNK
     Route: 048
     Dates: start: 20180419, end: 20180818
  8. FLUITRAN [Suspect]
     Active Substance: TRICHLORMETHIAZIDE
     Indication: OEDEMA DUE TO CARDIAC DISEASE
     Dosage: UNK
     Route: 048
     Dates: start: 20180413
  9. MAINTATE [Suspect]
     Active Substance: BISOPROLOL FUMARATE
     Indication: CARDIAC FAILURE
     Dosage: UNK
     Route: 048
     Dates: start: 20180404, end: 20180609
  10. MIYA-BM [Concomitant]
     Active Substance: CLOSTRIDIUM BUTYRICUM SPORES STRAIN M-55
     Indication: GASTROINTESTINAL DISORDER
     Dosage: UNK
     Route: 048
     Dates: start: 20180413
  11. OLOPATADINE. [Concomitant]
     Active Substance: OLOPATADINE
     Indication: HYPERSENSITIVITY
     Dosage: UNK
     Route: 048
     Dates: start: 20180521
  12. SAMSCA [Suspect]
     Active Substance: TOLVAPTAN
     Indication: FLUID RETENTION
     Dosage: UNK
     Route: 048
     Dates: start: 20180221
  13. AMIODARONE HYDROCHLORIDE TE [Concomitant]
     Indication: VENTRICULAR FIBRILLATION
     Dosage: UNK
     Route: 048
     Dates: start: 20180222, end: 20190721
  14. SELARA [Suspect]
     Active Substance: EPLERENONE
     Dosage: 50 MG, 1X/DAY
     Dates: start: 20180601
  15. PIMOBENDAN [Concomitant]
     Active Substance: PIMOBENDAN
     Indication: CARDIAC FAILURE
     Dosage: UNK
     Route: 048
     Dates: start: 20180403
  16. RUEFRIEN [Concomitant]
     Active Substance: GLUTAMINE\SODIUM GUALENATE
     Indication: GASTRIC ULCER
     Dosage: UNK
     Route: 048
     Dates: start: 20180413
  17. WARFARIN [Concomitant]
     Active Substance: WARFARIN
     Dosage: UNK
     Route: 048
     Dates: start: 20180910, end: 20181001
  18. SODIUM PICOSULFATE [Concomitant]
     Active Substance: SODIUM PICOSULFATE
     Indication: CONSTIPATION
     Dosage: UNK
     Route: 048
     Dates: start: 20180413
  19. SELARA [Suspect]
     Active Substance: EPLERENONE
     Indication: CARDIAC FAILURE CHRONIC
     Dosage: 25 MG, 1X/DAY
     Dates: start: 20180412, end: 20180531
  20. WARFARIN [Concomitant]
     Active Substance: WARFARIN
     Indication: ATRIAL FIBRILLATION
     Dosage: UNK
     Route: 048
     Dates: start: 20180702, end: 20180721

REACTIONS (2)
  - Fall [Recovered/Resolved with Sequelae]
  - Spinal cord injury [Recovered/Resolved with Sequelae]

NARRATIVE: CASE EVENT DATE: 20180720
